FAERS Safety Report 6488589-2 (Version None)
Quarter: 2009Q4

REPORT INFORMATION
  Report Type: 
  Country: None (occurrence: None)
  Receive Date: 20091210
  Receipt Date: 20090908
  Transmission Date: 20100525
  Serious: No
  Sender: FDA-Public Use
  Company Number: US-AMGEN-KDL363637

PATIENT
  Sex: Female

DRUGS (2)
  1. ENBREL [Suspect]
     Indication: RHEUMATOID ARTHRITIS
     Route: 058
     Dates: start: 20010101
  2. METHOTREXATE [Concomitant]
     Route: 048

REACTIONS (6)
  - ARTHRALGIA [None]
  - INJECTION SITE URTICARIA [None]
  - JOINT SWELLING [None]
  - ORAL DISORDER [None]
  - PAIN IN EXTREMITY [None]
  - TOOTH DISORDER [None]
